FAERS Safety Report 17116574 (Version 1)
Quarter: 2019Q4

REPORT INFORMATION
  Report Type: Spontaneous
  Country: US (occurrence: US)
  Receive Date: 20191113
  Receipt Date: 20191113
  Transmission Date: 20200122
  Serious: No
  Sender: FDA-Public Use
  Company Number: None

PATIENT
  Age: 33 Year
  Sex: Female
  Weight: 53.98 kg

DRUGS (16)
  1. ATORVASTATIN [Concomitant]
     Active Substance: ATORVASTATIN
  2. ZOLPIDEM [Concomitant]
     Active Substance: ZOLPIDEM TARTRATE
  3. FIORICET [Concomitant]
     Active Substance: ACETAMINOPHEN\BUTALBITAL\CAFFEINE
  4. FIBERCON [Concomitant]
     Active Substance: CALCIUM POLYCARBOPHIL
  5. CLONIDINE. [Concomitant]
     Active Substance: CLONIDINE
  6. VRAYLAR [Concomitant]
     Active Substance: CARIPRAZINE
  7. ALLEGRA [Concomitant]
     Active Substance: FEXOFENADINE HYDROCHLORIDE
  8. TOPAMAX [Concomitant]
     Active Substance: TOPIRAMATE
  9. MULTIVITAMIN [Concomitant]
     Active Substance: VITAMINS
  10. PROGESTERONE. [Concomitant]
     Active Substance: PROGESTERONE
  11. ASPIRIN. [Concomitant]
     Active Substance: ASPIRIN
  12. CULTURELLE [Concomitant]
     Active Substance: LACTOBACILLUS RHAMNOSUS
  13. METFORMIN [Concomitant]
     Active Substance: METFORMIN HYDROCHLORIDE
  14. SPIRONOLACTONE. [Concomitant]
     Active Substance: SPIRONOLACTONE
  15. VRAYLAR [Suspect]
     Active Substance: CARIPRAZINE
     Indication: BIPOLAR I DISORDER
     Dosage: ?          QUANTITY:1 PILL;?
     Route: 048
     Dates: start: 20191025
  16. CLONAZEPAM. [Concomitant]
     Active Substance: CLONAZEPAM

REACTIONS (2)
  - Migraine [None]
  - Product use issue [None]

NARRATIVE: CASE EVENT DATE: 20191025
